FAERS Safety Report 5644184-6 (Version None)
Quarter: 2008Q1

REPORT INFORMATION
  Report Type: 
  Country: None (occurrence: None)
  Receive Date: 20080227
  Receipt Date: 20080227
  Transmission Date: 20080703
  Serious: No
  Sender: FDA-Public Use
  Company Number: None

PATIENT
  Age: 68 Year
  Sex: Female
  Weight: 73.4827 kg

DRUGS (4)
  1. BONIVA [Suspect]
     Indication: OSTEOPENIA
     Dosage: ONE TABLET ONCE A MONTH BUCCAL
     Route: 002
     Dates: start: 20080115, end: 20080115
  2. BONIVA [Suspect]
     Indication: OSTEOPOROSIS
     Dosage: ONE TABLET ONCE A MONTH BUCCAL
     Route: 002
     Dates: start: 20080115, end: 20080115
  3. BONIVA [Suspect]
     Indication: OSTEOPENIA
     Dosage: ONE TABLET ONCE A MONTH BUCCAL
     Route: 002
     Dates: start: 20080216, end: 20080218
  4. BONIVA [Suspect]
     Indication: OSTEOPOROSIS
     Dosage: ONE TABLET ONCE A MONTH BUCCAL
     Route: 002
     Dates: start: 20080216, end: 20080218

REACTIONS (4)
  - INFLUENZA LIKE ILLNESS [None]
  - MYALGIA [None]
  - OEDEMA PERIPHERAL [None]
  - PAIN IN EXTREMITY [None]
